FAERS Safety Report 18790658 (Version 1)
Quarter: 2021Q1

REPORT INFORMATION
  Report Type: Spontaneous
  Country: US (occurrence: US)
  Receive Date: 20210126
  Receipt Date: 20210126
  Transmission Date: 20210419
  Serious: Yes (Hospitalization, Other)
  Sender: FDA-Public Use
  Company Number: US-IPCA LABORATORIES LIMITED-IPC-2021-US-000153

PATIENT

DRUGS (1)
  1. WARFARIN [Suspect]
     Active Substance: WARFARIN
     Indication: EMBOLISM
     Dosage: UNK
     Route: 065

REACTIONS (2)
  - Anticoagulant-related nephropathy [Recovering/Resolving]
  - International normalised ratio increased [Recovering/Resolving]
